FAERS Safety Report 20254042 (Version 2)
Quarter: 2021Q4

REPORT INFORMATION
  Report Type: Spontaneous
  Country: GB (occurrence: GB)
  Receive Date: 20211230
  Receipt Date: 20211231
  Transmission Date: 20220304
  Serious: Yes (Other)
  Sender: FDA-Public Use
  Company Number: GB-CELLTRION INC.-2021GB017367

PATIENT

DRUGS (2)
  1. INFLIXIMAB [Suspect]
     Active Substance: INFLIXIMAB
     Indication: Crohn^s disease
     Dosage: 120MG PREFILLED PEN, EVERY OTHER WEEK
     Route: 058
  2. INFLIXIMAB [Suspect]
     Active Substance: INFLIXIMAB
     Dosage: 120MG PREFILLED PEN, EVERY 2 WEEKS
     Route: 058

REACTIONS (5)
  - Stoma site haemorrhage [Unknown]
  - Stoma site infection [Recovered/Resolved]
  - Malaise [Recovered/Resolved]
  - Stoma site discharge [Unknown]
  - Intentional dose omission [Recovered/Resolved]
